FAERS Safety Report 9407011 (Version 2)
Quarter: 2013Q3

REPORT INFORMATION
  Report Type: Spontaneous
  Country: US (occurrence: US)
  Receive Date: 20130718
  Receipt Date: 20130930
  Transmission Date: 20140515
  Serious: No
  Sender: FDA-Public Use
  Company Number: US-BAYER-2013-086788

PATIENT
  Age: 21 Month
  Sex: Male
  Weight: 14 kg

DRUGS (3)
  1. ALEVE TABLET [Suspect]
     Dosage: 2 DF, ONCE
     Route: 048
     Dates: start: 20130711, end: 20130711
  2. ALEVE TABLET [Suspect]
  3. ZYRTEC [Concomitant]

REACTIONS (3)
  - Accidental exposure to product by child [None]
  - Failure of child resistant mechanism for pharmaceutical product [None]
  - Expired drug administered [None]
